FAERS Safety Report 6574060-6 (Version None)
Quarter: 2010Q1

REPORT INFORMATION
  Report Type: 
  Country: None (occurrence: None)
  Receive Date: 20100201
  Receipt Date: 20100118
  Transmission Date: 20100710
  Serious: Yes (Hospitalization)
  Sender: FDA-Public Use
  Company Number: 004959

PATIENT
  Sex: Female

DRUGS (8)
  1. KEPPRA [Suspect]
     Indication: EPILEPSY
     Dosage: 500 MG BID ORAL
     Route: 048
     Dates: start: 20080101, end: 20090502
  2. ATHYMIL [Concomitant]
  3. EUPANTOL [Concomitant]
  4. FUMAFER [Concomitant]
  5. TERCIAN [Concomitant]
  6. IKARAN [Concomitant]
  7. VALIUM [Concomitant]
  8. DEPAMIDE [Concomitant]

REACTIONS (4)
  - ATONIC SEIZURES [None]
  - DRUG PRESCRIBING ERROR [None]
  - OXYGEN SATURATION DECREASED [None]
  - PNEUMONIA ASPIRATION [None]
